FAERS Safety Report 25138060 (Version 3)
Quarter: 2025Q2

REPORT INFORMATION
  Report Type: Report from Study
  Country: US (occurrence: US)
  Receive Date: 20250329
  Receipt Date: 20250611
  Transmission Date: 20250717
  Serious: Yes (Hospitalization, Other)
  Sender: TAKEDA
  Company Number: US-TAKEDA-2025TUS031708

PATIENT
  Sex: Female
  Weight: 111.11 kg

DRUGS (3)
  1. FRUQUINTINIB [Suspect]
     Active Substance: FRUQUINTINIB
     Indication: Colon cancer
  2. DULOXETINE [Concomitant]
     Active Substance: DULOXETINE
  3. LYRICA [Concomitant]
     Active Substance: PREGABALIN

REACTIONS (9)
  - Influenza [Unknown]
  - Colorectal cancer recurrent [Unknown]
  - Pulmonary mass [Unknown]
  - Pruritus [Unknown]
  - Dry skin [Unknown]
  - Blood glucose abnormal [Unknown]
  - Spinal osteoarthritis [Unknown]
  - Arthralgia [Unknown]
  - Diarrhoea [Unknown]
